FAERS Safety Report 10306085 (Version 2)
Quarter: 2014Q4

REPORT INFORMATION
  Report Type: Spontaneous
  Country: US (occurrence: US)
  Receive Date: 20140715
  Receipt Date: 20141015
  Transmission Date: 20150528
  Serious: No
  Sender: FDA-Public Use
  Company Number: US-GILEAD-2014-0108638

PATIENT
  Age: 56 Year
  Sex: Male

DRUGS (3)
  1. REVATIO [Concomitant]
     Active Substance: SILDENAFIL CITRATE
  2. LETAIRIS [Suspect]
     Active Substance: AMBRISENTAN
     Indication: PRODUCT USED FOR UNKNOWN INDICATION
     Route: 065
     Dates: start: 20120202
  3. LACTOSE [Concomitant]
     Active Substance: LACTOSE

REACTIONS (2)
  - Flatulence [Unknown]
  - Abdominal distension [Unknown]
